FAERS Safety Report 9302871 (Version 1)
Quarter: 2013Q2

REPORT INFORMATION
  Report Type: Spontaneous
  Country: US (occurrence: US)
  Receive Date: 20130522
  Receipt Date: 20130522
  Transmission Date: 20140414
  Serious: Yes (Hospitalization)
  Sender: FDA-Public Use
  Company Number: US-BAYER-2013-063202

PATIENT
  Age: 47 Year
  Sex: Female

DRUGS (3)
  1. YASMIN [Suspect]
  2. OCELLA [Suspect]
  3. ADVIL [Concomitant]
     Dosage: 200 MG, UNK
     Route: 048
     Dates: start: 20120727

REACTIONS (1)
  - Pulmonary embolism [None]
